FAERS Safety Report 9215308 (Version 2)
Quarter: 2013Q2

REPORT INFORMATION
  Report Type: Report from Study
  Country: US (occurrence: US)
  Receive Date: 20130405
  Receipt Date: 20130607
  Transmission Date: 20140414
  Serious: Yes (Other)
  Sender: FDA-Public Use
  Company Number: US-US-EMD SERONO, INC.-7202984

PATIENT
  Sex: Male

DRUGS (3)
  1. REBIF [Suspect]
     Indication: PRODUCT USED FOR UNKNOWN INDICATION
  2. REBIF [Suspect]
     Route: 058
     Dates: start: 20100224, end: 201305
  3. ACETAMINOPHEN [Concomitant]
     Indication: PREMEDICATION

REACTIONS (2)
  - Laryngeal cancer [Recovering/Resolving]
  - Influenza like illness [Not Recovered/Not Resolved]
